FAERS Safety Report 25488103 (Version 1)
Quarter: 2025Q2

REPORT INFORMATION
  Report Type: Spontaneous
  Country: ES (occurrence: ES)
  Receive Date: 20250627
  Receipt Date: 20250627
  Transmission Date: 20250717
  Serious: Yes (Life-Threatening, Hospitalization, Other)
  Sender: AUROBINDO
  Company Number: ES-AEMPS-1669039

PATIENT
  Age: 30 Year
  Sex: Female

DRUGS (3)
  1. ACETAMINOPHEN [Interacting]
     Active Substance: ACETAMINOPHEN
     Indication: Suicidal ideation
     Route: 048
     Dates: start: 20250224, end: 20250224
  2. QUETIAPINE [Interacting]
     Active Substance: QUETIAPINE
     Indication: Suicidal ideation
     Route: 048
     Dates: start: 20250224, end: 20250224
  3. CLORAZEPATE DIPOTASSIUM [Interacting]
     Active Substance: CLORAZEPATE DIPOTASSIUM
     Indication: Suicidal ideation
     Route: 048
     Dates: start: 20250224, end: 20250224

REACTIONS (2)
  - Acute hepatic failure [Recovering/Resolving]
  - Intentional overdose [Recovered/Resolved]

NARRATIVE: CASE EVENT DATE: 20250225
